FAERS Safety Report 6677800-0 (Version None)
Quarter: 2010Q2

REPORT INFORMATION
  Report Type: 
  Country: None (occurrence: None)
  Receive Date: 20100409
  Receipt Date: 20100409
  Transmission Date: 20101027
  Serious: Yes (Other)
  Sender: FDA-Public Use
  Company Number: None

PATIENT
  Sex: Female
  Weight: 76.6579 kg

DRUGS (3)
  1. LUTERA / WATSON [Suspect]
     Indication: CONTRACEPTION
     Dosage: 1 TAB OD PO
     Route: 048
     Dates: start: 20080501, end: 20090312
  2. LUTERA / WATSON [Suspect]
  3. UNKNOWN DRUG [Concomitant]

REACTIONS (2)
  - DRUG EXPOSURE DURING PREGNANCY [None]
  - PREGNANCY ON ORAL CONTRACEPTIVE [None]
